FAERS Safety Report 6681588-7 (Version None)
Quarter: 2010Q2

REPORT INFORMATION
  Report Type: 
  Country: None (occurrence: None)
  Receive Date: 20100413
  Receipt Date: 20100413
  Transmission Date: 20101027
  Serious: Yes (Other)
  Sender: FDA-Public Use
  Company Number: None

PATIENT
  Sex: Female
  Weight: 47.6277 kg

DRUGS (1)
  1. TAMIFLU [Suspect]

REACTIONS (6)
  - EYE SWELLING [None]
  - FACE OEDEMA [None]
  - LIP SWELLING [None]
  - OEDEMA MOUTH [None]
  - RASH PRURITIC [None]
  - URTICARIA [None]
